FAERS Safety Report 24066357 (Version 1)
Quarter: 2024Q3

REPORT INFORMATION
  Report Type: Spontaneous
  Country: NL (occurrence: NL)
  Receive Date: 20240709
  Receipt Date: 20240709
  Transmission Date: 20241016
  Serious: Yes (Other)
  Sender: GILEAD
  Company Number: NL-GILEAD-2024-0679260

PATIENT
  Sex: Male

DRUGS (1)
  1. YESCARTA [Suspect]
     Active Substance: AXICABTAGENE CILOLEUCEL
     Indication: Diffuse large B-cell lymphoma
     Dosage: UNK
     Route: 065
     Dates: start: 202112

REACTIONS (5)
  - Immune system disorder [Unknown]
  - Headache [Unknown]
  - Neurological symptom [Unknown]
  - Arthropod bite [Unknown]
  - Weight decreased [Unknown]
